FAERS Safety Report 8484529-5 (Version None)
Quarter: 2012Q3

REPORT INFORMATION
  Report Type: 
  Country: None (occurrence: None)
  Receive Date: 20120703
  Receipt Date: 20120621
  Transmission Date: 20120928
  Serious: Yes (Other)
  Sender: FDA-Public Use
  Company Number: JP-VERTEX PHARMACEUTICALS INC.-AE-2012-004720

PATIENT
  Age: 60 Year
  Sex: Female

DRUGS (16)
  1. TELAVIC (TELAPREVIR) [Suspect]
     Indication: HEPATITIS C
     Route: 048
     Dates: start: 20111216, end: 20120309
  2. REBETOL [Concomitant]
     Route: 048
     Dates: start: 20120428, end: 20120521
  3. PEGINTERFERON ALFA-2B [Concomitant]
     Route: 058
     Dates: end: 20120525
  4. XYZAL [Concomitant]
     Route: 048
     Dates: start: 20111216, end: 20120531
  5. REBETOL [Concomitant]
     Route: 048
     Dates: start: 20111230, end: 20120126
  6. REBETOL [Concomitant]
     Route: 048
     Dates: start: 20120127, end: 20120309
  7. REBETOL [Concomitant]
     Route: 048
     Dates: start: 20120407, end: 20120427
  8. LEVOTHYROXINE SODIUM [Concomitant]
     Route: 048
     Dates: end: 20120427
  9. LEVOTHYROXINE SODIUM [Concomitant]
     Route: 048
     Dates: start: 20120428
  10. REBETOL [Concomitant]
     Indication: HEPATITIS C
     Route: 048
     Dates: start: 20111216, end: 20111229
  11. EVISTA [Concomitant]
     Route: 048
     Dates: start: 20111218
  12. VIVIANT [Concomitant]
     Route: 048
     Dates: start: 20120204, end: 20120531
  13. REBETOL [Concomitant]
     Route: 048
     Dates: start: 20120310, end: 20120406
  14. PEGINTERFERON ALFA-2B [Concomitant]
     Indication: HEPATITIS C
     Route: 058
     Dates: start: 20111216, end: 20111222
  15. PEGINTERFERON ALFA-2B [Concomitant]
     Dates: start: 20111223
  16. SELBEX [Concomitant]
     Route: 048
     Dates: start: 20111216, end: 20120531

REACTIONS (1)
  - NEUTROPHIL COUNT DECREASED [None]
